FAERS Safety Report 7489882-7 (Version None)
Quarter: 2011Q2

REPORT INFORMATION
  Report Type: 
  Country: None (occurrence: None)
  Receive Date: 20110517
  Receipt Date: 20110517
  Transmission Date: 20111010
  Serious: Yes (Other)
  Sender: FDA-Public Use
  Company Number: None

PATIENT
  Sex: Female
  Weight: 89.8122 kg

DRUGS (4)
  1. PRADAXA [Suspect]
     Indication: HEADACHE
     Dosage: 150MG 2 TIMES DAILY PO
     Route: 048
     Dates: start: 20110512, end: 20110514
  2. PRADAXA [Suspect]
     Indication: FATIGUE
     Dosage: 150MG 2 TIMES DAILY PO
     Route: 048
     Dates: start: 20110512, end: 20110514
  3. PRADAXA [Suspect]
     Indication: RASH
     Dosage: 150MG 2 TIMES DAILY PO
     Route: 048
     Dates: start: 20110512, end: 20110514
  4. PRADAXA [Suspect]
     Indication: ASTHENIA
     Dosage: 150MG 2 TIMES DAILY PO
     Route: 048
     Dates: start: 20110512, end: 20110514

REACTIONS (6)
  - HEADACHE [None]
  - FATIGUE [None]
  - MEDICATION ERROR [None]
  - INCORRECT DOSE ADMINISTERED [None]
  - PRURITUS [None]
  - ASTHENIA [None]
